FAERS Safety Report 12658735 (Version 1)
Quarter: 2016Q3

REPORT INFORMATION
  Report Type: Spontaneous
  Country: US (occurrence: US)
  Receive Date: 20160817
  Receipt Date: 20160817
  Transmission Date: 20161109
  Serious: Yes (Other)
  Sender: FDA-Public Use
  Company Number: US-IROKO PHARMACEUTICALS LLC-US-I09001-16-00082

PATIENT

DRUGS (1)
  1. VIVLODEX [Suspect]
     Active Substance: MELOXICAM
     Indication: SPINAL CORD INJURY
     Route: 065

REACTIONS (3)
  - Haemorrhagic diathesis [Unknown]
  - Drug ineffective for unapproved indication [Unknown]
  - Off label use [Unknown]
